FAERS Safety Report 8110812-9 (Version None)
Quarter: 2012Q1

REPORT INFORMATION
  Report Type: 
  Country: None (occurrence: None)
  Receive Date: 20120203
  Receipt Date: 20120127
  Transmission Date: 20120608
  Serious: Yes (Hospitalization)
  Sender: FDA-Public Use
  Company Number: US-BAYER-2011-023888

PATIENT
  Sex: Female
  Weight: 99.773 kg

DRUGS (3)
  1. YAZ [Suspect]
     Dosage: UNK
     Route: 048
     Dates: start: 20080701, end: 20091201
  2. METHADONE HCL [Concomitant]
     Indication: PAIN
     Dosage: UNK, DAILY
     Dates: start: 20070101
  3. IBUPROFEN [Concomitant]
     Indication: PAIN
     Dosage: 300 MCG/24HR, UNK
     Dates: start: 20100101, end: 20110101

REACTIONS (2)
  - PAIN [None]
  - CHOLELITHIASIS [None]
